FAERS Safety Report 6874976-7 (Version None)
Quarter: 2010Q2

REPORT INFORMATION
  Report Type: 
  Country: None (occurrence: None)
  Receive Date: 20100616
  Receipt Date: 20081022
  Transmission Date: 20101027
  Serious: No
  Sender: FDA-Public Use
  Company Number: 1000001429

PATIENT
  Sex: Male

DRUGS (2)
  1. NAMENDA [Suspect]
     Indication: PARKINSON'S DISEASE
     Dosage: 20 MG (10 MG,2 IN 1 D),ORAL
     Route: 048
  2. NAMENDA [Suspect]
     Indication: PARKINSON'S DISEASE
     Dosage: 5 MG (5 MG,1 IN 1 D),ORAL ; 10 MG (5MG,2 IN 1 D),ORAL ; 15 MG (1 IN 1 D),ORAL
     Route: 048

REACTIONS (1)
  - PARANOIA [None]
